FAERS Safety Report 19354399 (Version 3)
Quarter: 2021Q2

REPORT INFORMATION
  Report Type: Report from Study
  Country: RU (occurrence: RU)
  Receive Date: 20210602
  Receipt Date: 20210610
  Transmission Date: 20210717
  Serious: Yes (Congenital Anomaly)
  Sender: FDA-Public Use
  Company Number: RU-TEVA-2021-RU-1917355

PATIENT

DRUGS (1)
  1. GLATIRAMER ACETATE. [Suspect]
     Active Substance: GLATIRAMER ACETATE
     Indication: MULTIPLE SCLEROSIS
     Route: 064

REACTIONS (2)
  - Foetal exposure during pregnancy [Unknown]
  - Cardiac failure [Unknown]
